FAERS Safety Report 5020476-9 (Version None)
Quarter: 2006Q2

REPORT INFORMATION
  Report Type: 
  Country: None (occurrence: None)
  Receive Date: 20060602
  Receipt Date: 20060529
  Transmission Date: 20061013
  Serious: Yes (Hospitalization)
  Sender: FDA-Public Use
  Company Number: FRWYE659229MAY06

PATIENT
  Age: 61 Year
  Sex: Male

DRUGS (9)
  1. RAPAMUNE [Suspect]
     Indication: PROPHYLAXIS AGAINST TRANSPLANT REJECTION
     Dosage: 2 MG 1X PER 1 DAY ORAL
     Route: 048
     Dates: end: 20060401
  2. AMLODIPINE BESYLATE [Suspect]
     Indication: HYPERTENSION
     Dosage: 5 MG 1X PER 1 DAY ORAL
     Route: 048
  3. EUPRESSYL (URAPIDIL) [Suspect]
     Indication: HYPERTENSION
     Dosage: 60 MG 2X PER 1 DAY ORAL
     Route: 048
  4. HYPERIUM (RILMENIDINE) [Suspect]
     Indication: HYPERTENSION
     Dosage: 1 MG 1X PER 1 DAY ORAL
     Route: 048
  5. LASIX [Suspect]
     Indication: HYPERTENSION
     Dosage: 500 MG 1X PER 1 DAY ORAL
     Route: 048
     Dates: end: 20060413
  6. LEXOMIL (BROMAZEPAM) [Suspect]
     Indication: ANXIETY
     Dosage: 1 TABLET TOTAL DAILY ORAL
     Route: 048
     Dates: end: 20060410
  7. OROCAL VITAMIN D (CALCIUM CARBONATE/ERGOCALCIFEROL) [Concomitant]
  8. PAROXETINE HYDROCHLORIDE [Concomitant]
  9. LOVENOX [Concomitant]

REACTIONS (5)
  - ASTHENIA [None]
  - DEPRESSION [None]
  - GENERAL PHYSICAL HEALTH DETERIORATION [None]
  - GUILLAIN-BARRE SYNDROME [None]
  - THERAPY NON-RESPONDER [None]
